FAERS Safety Report 5796281-2 (Version None)
Quarter: 2008Q3

REPORT INFORMATION
  Report Type: 
  Country: None (occurrence: None)
  Receive Date: 20080701
  Receipt Date: 20080619
  Transmission Date: 20090109
  Serious: Yes (Hospitalization)
  Sender: FDA-Public Use
  Company Number: FR-WYE-H04730108

PATIENT
  Sex: Female

DRUGS (9)
  1. CORDARONE [Suspect]
     Indication: ARRHYTHMIA
     Route: 048
     Dates: start: 20080326
  2. CORDARONE [Interacting]
     Indication: ATRIAL FIBRILLATION
  3. LASIX [Concomitant]
     Indication: HYPERTENSION
     Route: 048
  4. AMLOR [Concomitant]
     Indication: HYPERTENSION
     Route: 048
     Dates: end: 20080426
  5. PREVISCAN [Concomitant]
     Indication: ARRHYTHMIA
     Route: 048
     Dates: start: 20080326, end: 20080426
  6. PREVISCAN [Concomitant]
     Indication: ATRIAL FIBRILLATION
  7. BISOPROLOL FUMARATE [Interacting]
     Indication: HYPERTENSION
     Route: 048
     Dates: end: 20080426
  8. BISOPROLOL FUMARATE [Interacting]
     Route: 048
     Dates: start: 20080427
  9. ALDACTONE [Concomitant]
     Indication: HYPERTENSION
     Route: 048
     Dates: end: 20080426

REACTIONS (3)
  - BRADYCARDIA [None]
  - CARDIAC FAILURE [None]
  - DRUG INTERACTION [None]
